FAERS Safety Report 11225283 (Version 1)
Quarter: 2015Q2

REPORT INFORMATION
  Report Type: Spontaneous
  Country: IN (occurrence: IN)
  Receive Date: 20150629
  Receipt Date: 20150629
  Transmission Date: 20150821
  Serious: Yes (Death)
  Sender: FDA-Public Use
  Company Number: IN-ASTELLAS-2015US022488

PATIENT
  Age: 18 Year
  Sex: Male

DRUGS (1)
  1. AMBISOME [Suspect]
     Active Substance: AMPHOTERICIN B
     Indication: ZYGOMYCOSIS
     Dosage: 15 MG/KG, QD
     Route: 065

REACTIONS (2)
  - Drug ineffective [Fatal]
  - Overdose [Unknown]
